FAERS Safety Report 23599324 (Version 1)
Quarter: 2024Q1

REPORT INFORMATION
  Report Type: Report from Study
  Country: US (occurrence: US)
  Receive Date: 20240306
  Receipt Date: 20240306
  Transmission Date: 20240409
  Serious: No
  Sender: FDA-Public Use
  Company Number: US-BIOVITRUM-2024-US-003483

PATIENT
  Age: 44 Year
  Sex: Female

DRUGS (1)
  1. KINERET [Suspect]
     Active Substance: ANAKINRA
     Indication: Deafness bilateral
     Dosage: 100MG, DAILY
     Route: 058
     Dates: start: 20230616

REACTIONS (5)
  - Conjunctivitis [Unknown]
  - Nasopharyngitis [Unknown]
  - Intentional dose omission [Unknown]
  - COVID-19 [Unknown]
  - Off label use [Not Recovered/Not Resolved]

NARRATIVE: CASE EVENT DATE: 20230616
